FAERS Safety Report 6862346-7 (Version None)
Quarter: 2010Q3

REPORT INFORMATION
  Report Type: 
  Country: None (occurrence: None)
  Receive Date: 20100721
  Receipt Date: 20100713
  Transmission Date: 20110219
  Serious: Yes (Death, Other)
  Sender: FDA-Public Use
  Company Number: GB-PURDUE-GBR-2010-0006816

PATIENT
  Age: 45 Year
  Sex: Female

DRUGS (2)
  1. OXYCONTIN [Suspect]
     Indication: PAIN
     Route: 065
  2. OXYCODONE HCL [Suspect]
     Indication: PAIN
     Route: 042

REACTIONS (5)
  - AGITATION [None]
  - DEATH [None]
  - DROOLING [None]
  - SEDATION [None]
  - WEIGHT DECREASED [None]
